FAERS Safety Report 6315924-8 (Version None)
Quarter: 2009Q3

REPORT INFORMATION
  Report Type: 
  Country: None (occurrence: None)
  Receive Date: 20090819
  Receipt Date: 20090819
  Transmission Date: 20100115
  Serious: Yes (Other)
  Sender: FDA-Public Use
  Company Number: None

PATIENT
  Age: 66 Year
  Sex: Female
  Weight: 108.8633 kg

DRUGS (2)
  1. ZICAM COLD REMEDY NASAL GEL ZINCUM GLUCONICUM 2X MATRIXX/ZICAMLLC [Suspect]
     Dosage: SWAB ONCE EVERY 48 HRS. NASAL
     Route: 045
     Dates: start: 20090401, end: 20090403
  2. ZICAM COLD REMEDY NASAL GEL ZINCUM GLUCONICUM 2X MATRIXX/ZICAMLLC [Suspect]

REACTIONS (2)
  - AGEUSIA [None]
  - ANOSMIA [None]
